FAERS Safety Report 4896872-7 (Version None)
Quarter: 2006Q1

REPORT INFORMATION
  Report Type: 
  Country: None (occurrence: None)
  Receive Date: 20060131
  Receipt Date: 20060120
  Transmission Date: 20060701
  Serious: Yes (Life-Threatening, Hospitalization)
  Sender: FDA-Public Use
  Company Number: US-JNJFOC-20051205216

PATIENT
  Sex: Male
  Weight: 83.24 kg

DRUGS (10)
  1. REMICADE [Suspect]
     Route: 042
  2. REMICADE [Suspect]
     Route: 042
  3. REMICADE [Suspect]
     Route: 042
  4. REMICADE [Suspect]
     Route: 042
  5. REMICADE [Suspect]
     Route: 042
  6. REMICADE [Suspect]
     Route: 042
  7. REMICADE [Suspect]
     Indication: RHEUMATOID ARTHRITIS
     Route: 042
  8. METHOTREXATE [Suspect]
     Indication: RHEUMATOID ARTHRITIS
  9. ARAVA [Suspect]
     Indication: RHEUMATOID ARTHRITIS
  10. PREDNISONE [Concomitant]

REACTIONS (12)
  - BLADDER DISORDER [None]
  - CATHETER RELATED COMPLICATION [None]
  - CONFUSIONAL STATE [None]
  - DIVERTICULUM INTESTINAL [None]
  - DYSPHAGIA [None]
  - HAEMORRHAGIC CYST [None]
  - ORAL CANDIDIASIS [None]
  - PALATAL DISORDER [None]
  - PHARYNGOLARYNGEAL PAIN [None]
  - RENAL ABSCESS [None]
  - RENAL CYST [None]
  - RENAL NEOPLASM [None]
